FAERS Safety Report 9104140 (Version 4)
Quarter: 2013Q4

REPORT INFORMATION
  Report Type: Spontaneous
  Country: FR (occurrence: FR)
  Receive Date: 20130219
  Receipt Date: 20131023
  Transmission Date: 20140711
  Serious: Yes (Life-Threatening, Hospitalization)
  Sender: FDA-Public Use
  Company Number: FR-PFIZER INC-2013055909

PATIENT
  Age: 58 Year
  Sex: Male

DRUGS (5)
  1. SOLU-MEDROL [Suspect]
     Dosage: 40 MG DAILY
     Route: 048
     Dates: start: 20121228, end: 20121230
  2. SOLU-MEDROL [Suspect]
     Dosage: 20 MG DAILY
     Route: 048
     Dates: start: 20121231
  3. IBUPROFENE [Suspect]
     Route: 048
  4. ROCEPHINE [Concomitant]
     Dosage: UNK
     Dates: start: 20121228
  5. NASONEX [Concomitant]
     Dosage: UNK
     Dates: start: 20121228

REACTIONS (1)
  - Pneumonia [Recovering/Resolving]
